FAERS Safety Report 4949084-2 (Version None)
Quarter: 2006Q1

REPORT INFORMATION
  Report Type: 
  Country: None (occurrence: None)
  Receive Date: 20060321
  Receipt Date: 20050728
  Transmission Date: 20060701
  Serious: Yes (Hospitalization, Disabling)
  Sender: FDA-Public Use
  Company Number: US-MERCK-0507USA04342

PATIENT
  Age: 46 Year
  Sex: Female
  Weight: 127 kg

DRUGS (6)
  1. VIOXX [Suspect]
     Indication: BACK PAIN
     Route: 048
     Dates: start: 19991101, end: 20040901
  2. VIOXX [Suspect]
     Indication: IMPINGEMENT SYNDROME
     Route: 048
     Dates: start: 19991101, end: 20040901
  3. AMARYL [Concomitant]
     Indication: DIABETES MELLITUS NON-INSULIN-DEPENDENT
     Route: 065
     Dates: start: 20000701
  4. AMARYL [Concomitant]
     Route: 065
  5. NORVASC [Concomitant]
     Route: 065
  6. ASPIRIN [Concomitant]
     Route: 065

REACTIONS (27)
  - AORTIC VALVE INCOMPETENCE [None]
  - BACK PAIN [None]
  - BRAIN OEDEMA [None]
  - CEREBRAL HAEMATOMA [None]
  - CEREBRAL HAEMORRHAGE [None]
  - CEREBROVASCULAR ACCIDENT [None]
  - COGNITIVE DISORDER [None]
  - DEPRESSION [None]
  - DIABETES MELLITUS NON-INSULIN-DEPENDENT [None]
  - DILATATION ATRIAL [None]
  - DILATATION VENTRICULAR [None]
  - DRUG INEFFECTIVE [None]
  - EMOTIONAL DISTRESS [None]
  - FALL [None]
  - HYPERTENSION [None]
  - JOINT SPRAIN [None]
  - LIGAMENT SPRAIN [None]
  - MILD MENTAL RETARDATION [None]
  - MUSCLE STRAIN [None]
  - PHARYNGITIS [None]
  - PULMONARY VALVE INCOMPETENCE [None]
  - PYREXIA [None]
  - RADIUS FRACTURE [None]
  - ROTATOR CUFF SYNDROME [None]
  - SCIATICA [None]
  - SINUSITIS [None]
  - VISION BLURRED [None]
